FAERS Safety Report 7402469-7 (Version None)
Quarter: 2011Q2

REPORT INFORMATION
  Report Type: 
  Country: None (occurrence: None)
  Receive Date: 20110408
  Receipt Date: 20110325
  Transmission Date: 20111010
  Serious: Yes (Other)
  Sender: FDA-Public Use
  Company Number: PHHY2010BE80113

PATIENT
  Sex: Female

DRUGS (8)
  1. LORAZEPAM [Concomitant]
     Dosage: 2 MG, QD
     Route: 048
  2. AROMASIN [Concomitant]
     Dosage: UNK
     Dates: start: 20090601
  3. COVERSYL [Concomitant]
     Route: 048
  4. D-CURE [Concomitant]
     Dosage: MONTHLY
     Route: 048
  5. OMEPRAZOLE [Concomitant]
     Route: 048
  6. KREDEX [Concomitant]
     Route: 048
  7. ZOMETA [Suspect]
     Indication: METASTASES TO BONE
     Dosage: 4MG/MONTH
     Dates: start: 20080601, end: 20100501
  8. CALCIUM [Concomitant]
     Dosage: 1 G, QD
     Route: 048

REACTIONS (8)
  - JAW DISORDER [None]
  - MUCOUS MEMBRANE DISORDER [None]
  - SINUSITIS [None]
  - OSTEONECROSIS OF JAW [None]
  - OSTEOLYSIS [None]
  - TOOTH HYPOPLASIA [None]
  - EDENTULOUS [None]
  - BONE SCAN ABNORMAL [None]
